FAERS Safety Report 19925306 (Version 3)
Quarter: 2023Q1

REPORT INFORMATION
  Report Type: Spontaneous
  Country: US (occurrence: US)
  Receive Date: 20211006
  Receipt Date: 20230207
  Transmission Date: 20230417
  Serious: Yes (Life-Threatening, Hospitalization, Other)
  Sender: FDA-Public Use
  Company Number: US-INCYTE CORPORATION-2021IN009009

PATIENT

DRUGS (19)
  1. JAKAFI [Suspect]
     Active Substance: RUXOLITINIB
     Indication: Myelofibrosis
     Dosage: UNK
     Route: 048
     Dates: start: 20200105
  2. JAKAFI [Suspect]
     Active Substance: RUXOLITINIB
     Dosage: 20 MILLIGRAM, BID
     Route: 048
     Dates: start: 20200903, end: 20201011
  3. JAKAFI [Suspect]
     Active Substance: RUXOLITINIB
     Dosage: 10 MILLIGRAM, BID
     Route: 048
     Dates: start: 20201012, end: 20201119
  4. JAKAFI [Suspect]
     Active Substance: RUXOLITINIB
     Dosage: 15 MILLIGRAM, BID
     Route: 048
     Dates: start: 20201120, end: 20210217
  5. JAKAFI [Suspect]
     Active Substance: RUXOLITINIB
     Dosage: 10 MILLIGRAM, BID
     Route: 048
     Dates: start: 20210218, end: 20210221
  6. JAKAFI [Suspect]
     Active Substance: RUXOLITINIB
     Dosage: 15 MILLIGRAM, BID
     Route: 048
     Dates: start: 20210222
  7. NAVITOCLAX [Suspect]
     Active Substance: NAVITOCLAX
     Indication: Myelofibrosis
     Dosage: 200 MILLIGRAM, QD
     Route: 048
     Dates: start: 20200904, end: 20201014
  8. NAVITOCLAX [Suspect]
     Active Substance: NAVITOCLAX
     Dosage: 100 MILLIGRAM, QD
     Route: 048
     Dates: start: 20201020
  9. DDAVP [Suspect]
     Active Substance: DESMOPRESSIN ACETATE
     Indication: Product used for unknown indication
     Route: 065
  10. EZETIMIBE [Concomitant]
     Active Substance: EZETIMIBE
     Indication: Hyperlipidaemia
     Dosage: 1 TABLET QD
     Route: 048
     Dates: start: 20200804
  11. OLMESARTAN [Concomitant]
     Active Substance: OLMESARTAN
     Indication: Hypertension
     Dosage: 20 MILLIGRAM, QD
     Route: 048
     Dates: start: 20010101
  12. ZOLPIDEM [Concomitant]
     Active Substance: ZOLPIDEM TARTRATE
     Indication: Insomnia
     Dosage: 10 MILLIGRAM, QD
     Route: 048
     Dates: start: 20010101
  13. SILDENAFIL [Concomitant]
     Active Substance: SILDENAFIL
     Indication: Erectile dysfunction
     Dosage: 100 MILLIGRAM, AS REQUIRED
     Route: 048
     Dates: start: 20010101
  14. AMOXICILLIN [Concomitant]
     Active Substance: AMOXICILLIN
     Indication: Dental operation
     Dosage: 875 MILLIGRAM
     Route: 048
     Dates: start: 20210219
  15. CLOBETASOL PROPIONATE [Concomitant]
     Active Substance: CLOBETASOL PROPIONATE
     Indication: Seborrhoeic dermatitis
     Dosage: 1 APPLICATION
     Route: 061
     Dates: start: 20210223
  16. MELOXICAM [Concomitant]
     Active Substance: MELOXICAM
     Indication: Neuralgia
     Dosage: 15 MILLIGRAM, QD
     Route: 065
     Dates: start: 20201101
  17. VITAMINS NOS [Concomitant]
     Active Substance: VITAMINS
     Indication: Supplementation therapy
     Dosage: 81 MILLIGRAM, QD
     Route: 048
     Dates: start: 20191001
  18. PFIZER-BIONTECH COVID-19 VACCINE [Concomitant]
     Active Substance: TOZINAMERAN
     Indication: COVID-19 immunisation
     Dosage: UNK
     Route: 065
     Dates: start: 20210129, end: 20210129
  19. PFIZER-BIONTECH COVID-19 VACCINE [Concomitant]
     Active Substance: TOZINAMERAN
     Dosage: UNK
     Route: 065
     Dates: start: 20210304, end: 20210304

REACTIONS (9)
  - Hyponatraemia [Recovered/Resolved]
  - Basal cell carcinoma [Recovered/Resolved]
  - Squamous cell carcinoma of skin [Recovered/Resolved]
  - Melanocytic naevus [Recovered/Resolved]
  - Abdominal pain [Recovered/Resolved]
  - Temperature intolerance [Recovered/Resolved]
  - Fatigue [Unknown]
  - Seborrhoeic dermatitis [Unknown]
  - Weight increased [Unknown]

NARRATIVE: CASE EVENT DATE: 20200501
